FAERS Safety Report 5865109-4 (Version None)
Quarter: 2008Q3

REPORT INFORMATION
  Report Type: 
  Country: None (occurrence: None)
  Receive Date: 20080829
  Receipt Date: 20080825
  Transmission Date: 20090109
  Serious: Yes (Hospitalization)
  Sender: FDA-Public Use
  Company Number: A0744130A

PATIENT
  Age: 48 Year
  Sex: Female

DRUGS (5)
  1. LAMICTAL [Suspect]
     Indication: MULTIPLE SCLEROSIS
     Route: 048
     Dates: start: 20050101, end: 20070101
  2. COPAXONE [Concomitant]
  3. DETROL [Concomitant]
  4. LITHIUM CARBONATE [Concomitant]
  5. ANTIDEPRESSANTS [Concomitant]

REACTIONS (1)
  - MENINGITIS VIRAL [None]
